FAERS Safety Report 8964124 (Version 1)
Quarter: 2012Q4

REPORT INFORMATION
  Report Type: 
  Country: GB (occurrence: GB)
  Receive Date: 20121213
  Receipt Date: 20121213
  Transmission Date: 20130627
  Serious: Yes (Other)
  Sender: FDA-Public Use
  Company Number: GB-GLAXOSMITHKLINE-B0851356A

PATIENT
  Sex: Female

DRUGS (12)
  1. SEROXAT [Suspect]
     Indication: DEPRESSION
     Dosage: 40MG Per day
     Route: 048
  2. FLUCLOXACILLIN [Concomitant]
     Dosage: 500MG Four times per day
  3. CIPROFLOXACIN [Concomitant]
  4. PREGABALIN [Concomitant]
  5. TARGINACT [Concomitant]
  6. NAPROXEN [Concomitant]
  7. FERROUS SULPHATE [Concomitant]
  8. SALAZOPYRIN [Concomitant]
  9. OROMORPH [Concomitant]
  10. PARACETAMOL [Concomitant]
  11. CALFOVIT D3 [Concomitant]
  12. PROTELOS [Concomitant]

REACTIONS (3)
  - Depression suicidal [Not Recovered/Not Resolved]
  - Quality of life decreased [Not Recovered/Not Resolved]
  - Feeling abnormal [Not Recovered/Not Resolved]
